FAERS Safety Report 25493622 (Version 2)
Quarter: 2025Q3

REPORT INFORMATION
  Report Type: Spontaneous
  Country: US (occurrence: US)
  Receive Date: 20250630
  Receipt Date: 20250930
  Transmission Date: 20251021
  Serious: Yes (Hospitalization, Other)
  Sender: CIPLA
  Company Number: US-MLMSERVICE-20250609-PI535504-00233-1

PATIENT

DRUGS (1)
  1. NAPROXEN [Suspect]
     Active Substance: NAPROXEN
     Indication: Product used for unknown indication
     Route: 048

REACTIONS (2)
  - Obstruction gastric [Recovering/Resolving]
  - Overdose [Unknown]
